FAERS Safety Report 8300101-1 (Version None)
Quarter: 2012Q2

REPORT INFORMATION
  Report Type: 
  Country: None (occurrence: None)
  Receive Date: 20120420
  Receipt Date: 20120417
  Transmission Date: 20120825
  Serious: Yes (Other)
  Sender: FDA-Public Use
  Company Number: US-PFIZER INC-2012095375

PATIENT
  Sex: Male
  Weight: 95.238 kg

DRUGS (7)
  1. VALIUM [Concomitant]
     Dosage: 10 MG, 3X/DAY
  2. SOMA [Concomitant]
     Indication: MUSCLE SPASMS
     Dosage: 350 MG, 3X/DAY
  3. LYRICA [Suspect]
     Dosage: 300 MG, 2X/DAY
     Dates: end: 20120401
  4. LISINOPRIL [Concomitant]
     Indication: BLOOD PRESSURE ABNORMAL
     Dosage: 20 MG, DAILY
  5. LYRICA [Suspect]
     Indication: SPINAL CORD DISORDER
     Dosage: 150 MG, 2X/DAY
     Dates: start: 20050101
  6. SOMA [Concomitant]
     Indication: NERVE INJURY
  7. LYRICA [Suspect]
     Dosage: UNK
     Dates: start: 20120401, end: 20120401

REACTIONS (1)
  - CHEST PAIN [None]
